FAERS Safety Report 4268081-6 (Version None)
Quarter: 2004Q1

REPORT INFORMATION
  Report Type: 
  Country: None (occurrence: None)
  Receive Date: 20040109
  Receipt Date: 20040109
  Transmission Date: 20041129
  Serious: Yes (Other)
  Sender: FDA-Public Use
  Company Number: None

PATIENT
  Age: 25 Year
  Sex: Male
  Weight: 122.4712 kg

DRUGS (2)
  1. PAXIL [Suspect]
     Indication: DEPRESSION
     Dosage: MAX DOSE 1 PER DAY ORAL
     Route: 048
     Dates: start: 20011201, end: 20020316
  2. PAXIL [Suspect]
     Indication: SOCIAL PHOBIA
     Dosage: MAX DOSE 1 PER DAY ORAL
     Route: 048
     Dates: start: 20011201, end: 20020316

REACTIONS (3)
  - ABNORMAL BEHAVIOUR [None]
  - DELUSION [None]
  - MANIA [None]
